FAERS Safety Report 15630603 (Version 3)
Quarter: 2018Q4

REPORT INFORMATION
  Report Type: Spontaneous
  Country: FR (occurrence: FR)
  Receive Date: 20181119
  Receipt Date: 20181211
  Transmission Date: 20190205
  Serious: Yes (Hospitalization)
  Sender: FDA-Public Use
  Company Number: PHHY2018FR156602

PATIENT
  Age: 57 Year
  Sex: Male
  Weight: 70.5 kg

DRUGS (2)
  1. NEORAL [Suspect]
     Active Substance: CYCLOSPORINE
     Dosage: 50 MG, TID
     Route: 048
     Dates: start: 20180713, end: 20180817
  2. NEORAL [Suspect]
     Active Substance: CYCLOSPORINE
     Indication: PSORIASIS
     Dosage: 100 MG, TID
     Route: 048
     Dates: start: 20180713, end: 20180817

REACTIONS (4)
  - Immune system disorder [Not Recovered/Not Resolved]
  - Infection [Unknown]
  - T-cell lymphoma [Unknown]
  - Discomfort [Not Recovered/Not Resolved]

NARRATIVE: CASE EVENT DATE: 20180817
